FAERS Safety Report 10235569 (Version 2)
Quarter: 2014Q2

REPORT INFORMATION
  Report Type: Spontaneous
  Country: BR (occurrence: BR)
  Receive Date: 20140613
  Receipt Date: 20140623
  Transmission Date: 20141212
  Serious: No
  Sender: FDA-Public Use
  Company Number: BR-JNJFOC-20140606256

PATIENT
  Age: 55 Year
  Sex: Male

DRUGS (2)
  1. XARELTO [Suspect]
     Indication: EMBOLISM VENOUS
     Route: 048
     Dates: end: 201406
  2. XARELTO [Suspect]
     Indication: DEEP VEIN THROMBOSIS POSTOPERATIVE
     Route: 048
     Dates: end: 201406

REACTIONS (1)
  - Skin reaction [Recovered/Resolved]
